FAERS Safety Report 9779532 (Version 1)
Quarter: 2013Q4

REPORT INFORMATION
  Report Type: Spontaneous
  Country: US (occurrence: US)
  Receive Date: 20131223
  Receipt Date: 20131223
  Transmission Date: 20140711
  Serious: No
  Sender: FDA-Public Use
  Company Number: US-PFIZER INC-2013364303

PATIENT
  Age: 64 Year
  Sex: Female
  Weight: 87.08 kg

DRUGS (1)
  1. XELJANZ [Suspect]
     Indication: RHEUMATOID ARTHRITIS
     Dosage: 5 MG, 1 TABLET TWICE DAILY
     Route: 048
     Dates: start: 20131101

REACTIONS (5)
  - Influenza [Recovered/Resolved]
  - Abdominal pain upper [Recovered/Resolved]
  - Diarrhoea [Recovered/Resolved]
  - Upper respiratory tract congestion [Recovered/Resolved]
  - Weight increased [Unknown]
